FAERS Safety Report 13909086 (Version 1)
Quarter: 2017Q3

REPORT INFORMATION
  Report Type: Spontaneous
  Country: GB (occurrence: GB)
  Receive Date: 20170828
  Receipt Date: 20170828
  Transmission Date: 20171127
  Serious: Yes (Other)
  Sender: FDA-Public Use
  Company Number: GB-009507513-1708GBR010380

PATIENT
  Age: 69 Year
  Sex: Male
  Weight: 88.9 kg

DRUGS (8)
  1. GARLIC. [Concomitant]
     Active Substance: GARLIC
     Dosage: UNK
  2. INDAPAMIDE. [Concomitant]
     Active Substance: INDAPAMIDE
     Dosage: 2.5 MG, UNK
  3. ZOCOR [Suspect]
     Active Substance: SIMVASTATIN
     Dosage: 10 MG, UNK
     Route: 048
     Dates: end: 20170804
  4. COD LIVER OIL [Concomitant]
     Active Substance: COD LIVER OIL
  5. ENALAPRIL MALEATE. [Concomitant]
     Active Substance: ENALAPRIL MALEATE
     Dosage: 20 MG, UNK
  6. AMLODIPINE [Concomitant]
     Active Substance: AMLODIPINE BESYLATE
     Dosage: 10 MG, UNK
  7. DOXAZOSIN [Concomitant]
     Active Substance: DOXAZOSIN\DOXAZOSIN MESYLATE
     Dosage: 2 MG, UNK
  8. GLUCOSAMINE [Concomitant]
     Active Substance: GLUCOSAMINE
     Dosage: UNK

REACTIONS (5)
  - Fatigue [Recovering/Resolving]
  - Constipation [Recovering/Resolving]
  - Back pain [Unknown]
  - Myalgia [Recovering/Resolving]
  - Muscular weakness [Recovering/Resolving]
